FAERS Safety Report 8166315-9 (Version None)
Quarter: 2012Q1

REPORT INFORMATION
  Report Type: 
  Country: None (occurrence: None)
  Receive Date: 20120227
  Receipt Date: 20110608
  Transmission Date: 20120608
  Serious: No
  Sender: FDA-Public Use
  Company Number: US-MYLANLABS-2011S1011834

PATIENT
  Sex: Female

DRUGS (3)
  1. CONTRACEPTIVE [Concomitant]
     Indication: CONTRACEPTION
  2. CLARAVIS [Suspect]
     Indication: ACNE
     Dates: end: 20110523
  3. AMNESTEEM [Suspect]
     Indication: ACNE
     Dates: end: 20110523

REACTIONS (1)
  - DRY SKIN [None]
